FAERS Safety Report 5384141-0 (Version None)
Quarter: 2007Q3

REPORT INFORMATION
  Report Type: 
  Country: None (occurrence: None)
  Receive Date: 20070709
  Receipt Date: 20061212
  Transmission Date: 20080115
  Serious: Yes (Other)
  Sender: FDA-Public Use
  Company Number: US-2006-029029

PATIENT
  Age: 41 Year

DRUGS (1)
  1. ULTRAVIST 300 [Suspect]
     Indication: COMPUTERISED TOMOGRAM THORAX
     Dosage: 1 DOSE, INTRAVENOUS
     Route: 042
     Dates: start: 20060421, end: 20060421

REACTIONS (9)
  - CHILLS [None]
  - CONJUNCTIVAL HYPERAEMIA [None]
  - FATIGUE [None]
  - HYPERSENSITIVITY [None]
  - NASAL CONGESTION [None]
  - SPEECH DISORDER [None]
  - SWELLING FACE [None]
  - TACHYCARDIA [None]
  - URTICARIA [None]
